FAERS Safety Report 7039919-4 (Version None)
Quarter: 2010Q4

REPORT INFORMATION
  Report Type: 
  Country: None (occurrence: None)
  Receive Date: 20101012
  Receipt Date: 20101005
  Transmission Date: 20110411
  Serious: Yes (Other)
  Sender: FDA-Public Use
  Company Number: JP-PFIZER INC-2010119165

PATIENT
  Age: 75 Year
  Sex: Female
  Weight: 37 kg

DRUGS (13)
  1. RIFABUTIN [Suspect]
     Indication: TUBERCULOSIS
     Dosage: 150 MG, 1X/DAY
     Route: 048
     Dates: start: 20091028, end: 20100709
  2. ARTIST [Concomitant]
     Dosage: 20 MG, DAY
     Route: 048
  3. ITOROL [Concomitant]
     Dosage: 80 UNK, DAY
     Route: 048
  4. AZULENE SULFONATE SODIUM/L-GLUTAMINE [Concomitant]
     Indication: GASTRITIS PROPHYLAXIS
     Dosage: 0.67 G, 3X/DAY
     Route: 048
  5. ADALAT CC [Concomitant]
     Dosage: 80 MG, DAY
     Route: 048
  6. ISCOTIN [Concomitant]
     Indication: TUBERCULOSIS
     Dosage: 0.2 G, 1X/DAY
     Route: 048
  7. EBUTOL [Concomitant]
     Indication: TUBERCULOSIS
     Dosage: 500 MG, 3 TIMES/WEEK
     Route: 048
  8. OMEPRAL [Concomitant]
     Indication: PROPHYLAXIS AGAINST GASTROINTESTINAL ULCER
     Dosage: 20 MG, 1X/DAY
     Route: 048
  9. OLMETEC [Concomitant]
     Dosage: 40 MG, 1X/DAY
     Route: 048
  10. CALCIUM CARBONATE [Concomitant]
     Dosage: 500 MG, 3X/DAY
     Route: 048
  11. DOXAZOSIN MESYLATE [Concomitant]
     Dosage: 2 MG, 1X/DAY
     Route: 048
  12. JUVELA NICOTINATE [Concomitant]
     Dosage: 10 MG, 2X/DAY
     Route: 048
  13. LAC B [Concomitant]
     Indication: DIARRHOEA
     Dosage: 3 G, DAY
     Route: 048

REACTIONS (1)
  - HYPERTENSION [None]
